FAERS Safety Report 13718176 (Version 1)
Quarter: 2017Q3

REPORT INFORMATION
  Report Type: Spontaneous
  Country: US (occurrence: US)
  Receive Date: 20170705
  Receipt Date: 20170705
  Transmission Date: 20171127
  Serious: Yes (Life-Threatening, Hospitalization)
  Sender: FDA-Public Use
  Company Number: PHHY2017US092298

PATIENT
  Age: 59 Year
  Sex: Female

DRUGS (1)
  1. HEPARIN [Suspect]
     Active Substance: HEPARIN SODIUM
     Indication: PROPHYLAXIS
     Dosage: 5000 U, TID, AT 10:00 PM ON POSTOPERATIVE DAY 1
     Route: 058

REACTIONS (8)
  - Respiratory distress [Recovered/Resolved]
  - Pulmonary embolism [Recovered/Resolved]
  - Muscular weakness [Recovered/Resolved]
  - Heparin-induced thrombocytopenia [Unknown]
  - Compartment syndrome [Recovered/Resolved]
  - Renal infarct [Recovered/Resolved]
  - Monoparesis [Recovering/Resolving]
  - Deep vein thrombosis [Recovered/Resolved]
